FAERS Safety Report 11878407 (Version 1)
Quarter: 2015Q4

REPORT INFORMATION
  Report Type: Not Available
  Country: FR (occurrence: FR)
  Receive Date: 20151230
  Receipt Date: 20151230
  Transmission Date: 20160305
  Serious: Yes (Hospitalization)
  Sender: FDA-Public Use
  Company Number: FR-MUNDIPHARMA DS AND PHARMACOVIGILANCE-GBR-2015-0033072

PATIENT
  Age: 44 Year
  Sex: Male

DRUGS (12)
  1. SEVREDOL, COMPRIME PELLICULE SECABLE [Suspect]
     Active Substance: MORPHINE SULFATE
     Dosage: 10 MG, PRN
     Route: 048
     Dates: start: 20150917, end: 20151014
  2. BRISTOPEN [Suspect]
     Active Substance: OXACILLIN SODIUM
     Indication: STAPHYLOCOCCAL INFECTION
     Dosage: 9 G, DAILY [1 G 9 TIMES A DAY]
     Route: 042
     Dates: start: 20151020, end: 20151104
  3. RIFADINE                           /00146901/ [Suspect]
     Active Substance: RIFAMPIN
     Dosage: 600 MG, BID
     Route: 048
     Dates: start: 20151013, end: 20151116
  4. CHRONADALATE [Concomitant]
     Active Substance: NIFEDIPINE
     Dosage: 30 MG, DAILY
     Route: 048
     Dates: start: 20151019
  5. ALPRAZOLAM. [Concomitant]
     Active Substance: ALPRAZOLAM
     Dosage: 0.5 MG, DAILY
     Route: 048
     Dates: start: 20151019
  6. PRIMPERAN [Suspect]
     Active Substance: METOCLOPRAMIDE HYDROCHLORIDE
     Indication: PRODUCT USED FOR UNKNOWN INDICATION
     Dosage: 10 MG, PRN
     Route: 048
     Dates: start: 20151019, end: 20151105
  7. SEVREDOL, COMPRIME PELLICULE SECABLE [Suspect]
     Active Substance: MORPHINE SULFATE
     Indication: PRODUCT USED FOR UNKNOWN INDICATION
     Dosage: 10 MG, PRN
     Route: 048
     Dates: start: 20151028, end: 20151104
  8. RIFADINE                           /00146901/ [Suspect]
     Active Substance: RIFAMPIN
     Indication: STAPHYLOCOCCAL INFECTION
     Dosage: 600 MG, BID
     Route: 048
     Dates: start: 20151020, end: 20151104
  9. LYRICA [Concomitant]
     Active Substance: PREGABALIN
     Indication: PAIN
     Dosage: UNK
     Route: 048
     Dates: start: 20150915
  10. HYDROXYZINE HYDROCHLORIDE. [Concomitant]
     Active Substance: HYDROXYZINE HYDROCHLORIDE
     Dosage: 50 MG, BID
     Route: 048
     Dates: start: 20151019
  11. ASPEGIC [Concomitant]
     Active Substance: ASPIRIN DL-LYSINE
     Dosage: 250 MG, DAILY
     Route: 048
     Dates: start: 20151019
  12. BRISTOPEN [Suspect]
     Active Substance: OXACILLIN SODIUM
     Dosage: 9 G, DAILY [1 G 9 TIMES A DAY]
     Route: 042
     Dates: start: 20151013, end: 20151016

REACTIONS (6)
  - Toxic skin eruption [None]
  - Cholestasis [Recovering/Resolving]
  - Drug reaction with eosinophilia and systemic symptoms [None]
  - Rash pruritic [Recovered/Resolved]
  - Pyrexia [Recovered/Resolved]
  - Rash maculo-papular [Recovered/Resolved]

NARRATIVE: CASE EVENT DATE: 20151031
